FAERS Safety Report 13793336 (Version 1)
Quarter: 2017Q3

REPORT INFORMATION
  Report Type: Spontaneous
  Country: US (occurrence: US)
  Receive Date: 20170726
  Receipt Date: 20170726
  Transmission Date: 20171127
  Serious: No
  Sender: FDA-Public Use
  Company Number: US-BIOGEN-2017BI00434140

PATIENT
  Age: 28 Year
  Sex: Female

DRUGS (1)
  1. TYSABRI [Suspect]
     Active Substance: NATALIZUMAB
     Indication: MULTIPLE SCLEROSIS
     Route: 065

REACTIONS (12)
  - Lymphadenopathy [Unknown]
  - Malaise [Unknown]
  - Pharyngitis [Unknown]
  - Tonsillar erythema [Unknown]
  - Pharyngeal erythema [Unknown]
  - Asthenia [Recovered/Resolved]
  - Nasopharyngitis [Unknown]
  - Tonsillar hypertrophy [Unknown]
  - Pharyngeal oedema [Unknown]
  - Vertigo [Unknown]
  - Tinnitus [Unknown]
  - Headache [Recovered/Resolved]
